FAERS Safety Report 10430324 (Version 1)
Quarter: 2014Q3

REPORT INFORMATION
  Report Type: Spontaneous
  Country: CA (occurrence: None)
  Receive Date: 20140902
  Receipt Date: 20140902
  Transmission Date: 20150326
  Serious: Yes (Other)
  Sender: FDA-Public Use
  Company Number: BD-2014-0041

PATIENT
  Age: 60 Year

DRUGS (4)
  1. FENTANYL. [Concomitant]
     Active Substance: FENTANYL
  2. DROPERIDOL. [Concomitant]
     Active Substance: DROPERIDOL
  3. ROPIVACAINE [Concomitant]
     Active Substance: ROPIVACAINE
  4. ONDANSETRON [Suspect]
     Active Substance: ONDANSETRON
     Indication: PROPHYLAXIS OF NAUSEA AND VOMITING
     Route: 042

REACTIONS (4)
  - Myocardial ischaemia [None]
  - Ventricular extrasystoles [None]
  - Ventricular tachycardia [None]
  - Supraventricular tachycardia [None]
